FAERS Safety Report 13414336 (Version 5)
Quarter: 2017Q4

REPORT INFORMATION
  Report Type: Spontaneous
  Country: KR (occurrence: KR)
  Receive Date: 20170407
  Receipt Date: 20171226
  Transmission Date: 20180320
  Serious: Yes (Life-Threatening, Hospitalization, Other)
  Sender: FDA-Public Use
  Company Number: KR-009507513-1704KOR001115

PATIENT
  Age: 81 Year
  Sex: Female

DRUGS (8)
  1. HISTAL (BIODIASTASE (+) CALCIUM CARBONATE (+) LICORICE (+) LIPASE (+) [Concomitant]
     Indication: PAIN PROPHYLAXIS
     Dosage: 1 TABLET, BID
     Route: 048
     Dates: start: 20161015
  2. ALDACTONE [Concomitant]
     Active Substance: SPIRONOLACTONE
     Indication: ESSENTIAL HYPERTENSION
     Dosage: HALF A TABLET, QD
     Route: 048
     Dates: start: 20161016
  3. ATACAND [Concomitant]
     Active Substance: CANDESARTAN CILEXETIL
     Indication: ESSENTIAL HYPERTENSION
     Dosage: HALF A TABLET, QD
     Route: 048
     Dates: start: 20161016
  4. MOLSITON [Concomitant]
     Indication: ACUTE MYOCARDIAL INFARCTION
     Dosage: 0.5 TABLET, BID
     Route: 048
     Dates: start: 20161015
  5. ATOZET [Suspect]
     Active Substance: ATORVASTATIN CALCIUM\EZETIMIBE
     Indication: DYSLIPIDAEMIA
     Dosage: 1 TABLET (10/10 MG), QD
     Route: 048
     Dates: start: 20161016
  6. PLAVIX [Concomitant]
     Active Substance: CLOPIDOGREL BISULFATE
     Indication: ACUTE MYOCARDIAL INFARCTION
     Dosage: 75 MG (1 TABLET), QD
     Route: 048
     Dates: start: 20161016
  7. DECAQUINON [Concomitant]
     Indication: ACUTE MYOCARDIAL INFARCTION
     Dosage: 5 MG, BID
     Route: 048
     Dates: start: 20161015
  8. ASPIRIN. [Concomitant]
     Active Substance: ASPIRIN
     Indication: ACUTE MYOCARDIAL INFARCTION
     Dosage: 100 MG (1 CAPSULE), QD
     Route: 048
     Dates: start: 20161016

REACTIONS (1)
  - Acute myocardial infarction [Recovered/Resolved]

NARRATIVE: CASE EVENT DATE: 20170325
